FAERS Safety Report 18122625 (Version 10)
Quarter: 2023Q4

REPORT INFORMATION
  Report Type: Spontaneous
  Country: CA (occurrence: CA)
  Receive Date: 20200807
  Receipt Date: 20231103
  Transmission Date: 20240110
  Serious: Yes (Hospitalization)
  Sender: FDA-Public Use
  Company Number: CA-TEVA-2020-CA-1810074

PATIENT
  Age: 11 Year
  Sex: Male

DRUGS (37)
  1. ARIPIPRAZOLE [Suspect]
     Active Substance: ARIPIPRAZOLE
     Indication: Child abuse
     Dosage: 6 MILLIGRAM DAILY; ADMINISTERED THREE TIMES DAILY
     Route: 048
  2. CELECOXIB [Suspect]
     Active Substance: CELECOXIB
     Indication: Child abuse
     Dosage: 200 MILLIGRAM DAILY;
     Route: 048
     Dates: start: 2016
  3. CLONIDINE [Suspect]
     Active Substance: CLONIDINE
     Indication: Child abuse
     Dosage: DOSE: 0.05MG EVERY MORNING AND 0.1 MG EVERY EVENING
     Route: 048
  4. DIPHENHYDRAMINE [Suspect]
     Active Substance: DIPHENHYDRAMINE
     Indication: Child abuse
     Dosage: 50 MILLIGRAM DAILY; ADMINISTERED EVERY 6 HOURS AS REQUIRED
     Route: 048
  5. DIPHENHYDRAMINE [Suspect]
     Active Substance: DIPHENHYDRAMINE
     Indication: Pruritus
  6. FLUOXETINE [Suspect]
     Active Substance: FLUOXETINE HYDROCHLORIDE
     Indication: Child abuse
     Dosage: 20 MILLIGRAM DAILY;
     Route: 048
  7. FLUTICASONE [Suspect]
     Active Substance: FLUTICASONE
     Indication: Child abuse
     Dosage: 2 DOSAGE FORMS DAILY; DOSE: 250MICROG PER ACTUATION; 2 PUFFS DAILY
     Route: 055
  8. GABAPENTIN [Suspect]
     Active Substance: GABAPENTIN
     Indication: Child abuse
     Dosage: 1800 MILLIGRAM DAILY; ADMINISTERED THREE TIMES DAILY
     Route: 048
     Dates: start: 2016
  9. GABAPENTIN [Suspect]
     Active Substance: GABAPENTIN
     Indication: Pain management
  10. MONTELUKAST [Suspect]
     Active Substance: MONTELUKAST SODIUM
     Indication: Child abuse
     Dosage: 10 MILLIGRAM DAILY;
     Route: 048
  11. PANTOPRAZOLE [Suspect]
     Active Substance: PANTOPRAZOLE
     Indication: Child abuse
     Dosage: 40 MILLIGRAM DAILY;
     Route: 048
  12. RANITIDINE [Suspect]
     Active Substance: RANITIDINE
     Indication: Child abuse
     Dosage: 150 MILLIGRAM DAILY;
     Route: 048
  13. ALBUTEROL SULFATE [Suspect]
     Active Substance: ALBUTEROL SULFATE
     Indication: Child abuse
     Dosage: 12 DOSAGE FORMS DAILY; DOSE: 100MICROG PER ACTUATION; 2 PUFFS EVERY 4 HOURS AS REQUIRED
     Route: 055
  14. CLOBAZAM [Suspect]
     Active Substance: CLOBAZAM
     Indication: Child abuse
     Dosage: 40 MILLIGRAM DAILY;
     Route: 048
  15. SODIUM ASCORBATE [Suspect]
     Active Substance: SODIUM ASCORBATE
     Indication: Product used for unknown indication
     Dosage: 1500 MILLIGRAM DAILY; ASCORBIC ACID-ASCORBATE SODIUM
     Route: 048
  16. BACLOFEN [Suspect]
     Active Substance: BACLOFEN
     Indication: Child abuse
     Dosage: 60 MILLIGRAM DAILY; ADMINISTERED THREE TIMES DAILY
     Route: 048
  17. BISACODYL [Suspect]
     Active Substance: BISACODYL
     Indication: Child abuse
     Dosage: 5 MILLIGRAM DAILY; ADMINISTERED DAILY AS REQUIRED
     Route: 048
  18. CHOLECALCIFEROL [Suspect]
     Active Substance: CHOLECALCIFEROL
     Indication: Child abuse
     Dosage: 2000 IU (INTERNATIONAL UNIT) DAILY;
     Route: 048
  19. HYDROXYCHLOROQUINE [Suspect]
     Active Substance: HYDROXYCHLOROQUINE
     Indication: Child abuse
     Dosage: 400 MILLIGRAM DAILY;
     Route: 048
  20. KETOROLAC [Suspect]
     Active Substance: KETOROLAC TROMETHAMINE
     Indication: Child abuse
     Dosage: 80 MILLIGRAM DAILY; ADMINISTERED EVERY 6 HOURS AS REQUIRED
     Route: 048
  21. KETOROLAC [Suspect]
     Active Substance: KETOROLAC TROMETHAMINE
     Indication: Pain
  22. LEUPROLIDE ACETATE [Suspect]
     Active Substance: LEUPROLIDE ACETATE
     Indication: Child abuse
     Route: 030
  23. LORAZEPAM [Suspect]
     Active Substance: LORAZEPAM
     Indication: Child abuse
     Dosage: DOSE: 0.5MG AND 2MG, AS REQUIRED
     Route: 060
     Dates: start: 2016
  24. LORAZEPAM [Suspect]
     Active Substance: LORAZEPAM
     Indication: Seizure
  25. LORAZEPAM [Suspect]
     Active Substance: LORAZEPAM
     Indication: Pain management
  26. LORAZEPAM [Suspect]
     Active Substance: LORAZEPAM
     Indication: Muscle spasms
  27. MELATONIN [Suspect]
     Active Substance: MELATONIN
     Indication: Child abuse
     Dosage: 10 MILLIGRAM DAILY; ADMINISTERED EVERY NIGHT
     Route: 048
  28. MELATONIN [Suspect]
     Active Substance: MELATONIN
     Indication: Sleep deficit
  29. ACETAMINOPHEN\METHOCARBAMOL [Suspect]
     Active Substance: ACETAMINOPHEN\METHOCARBAMOL
     Indication: Child abuse
     Route: 048
     Dates: start: 2016
  30. METHADONE [Suspect]
     Active Substance: METHADONE HYDROCHLORIDE
     Indication: Child abuse
     Dosage: 6 MILLIGRAM DAILY; ADMINISTERED THREE TIMES DAILY
     Route: 048
     Dates: start: 2016
  31. HYDROMORPHONE [Suspect]
     Active Substance: HYDROMORPHONE
     Indication: Child abuse
     Dosage: IMMEDIATE RELEASE
     Route: 065
     Dates: start: 2016
  32. HYDROMORPHONE [Suspect]
     Active Substance: HYDROMORPHONE
     Indication: Pain management
  33. DOCONEXENT\ ICOSAPENT\ FISH OIL\ OMEGA-3 FATTY ACIDS [Suspect]
     Active Substance: DOCONEXENT\ ICOSAPENT\ FISH OIL\ OMEGA-3 FATTY ACIDS
     Indication: Child abuse
     Dosage: OMEGA 3-DHA-EPA-FISH OIL
     Route: 048
  34. PHENOBARBITAL [Suspect]
     Active Substance: PHENOBARBITAL
     Indication: Child abuse
     Dosage: 60 MILLIGRAM DAILY;
     Route: 048
  35. POLYETHYLENE GLYCOL [Suspect]
     Active Substance: POLYETHYLENE GLYCOL
     Indication: Child abuse
     Dosage: 60 MILLIGRAM DAILY;
     Route: 048
  36. DIMENHYDRINATE [Suspect]
     Active Substance: DIMENHYDRINATE
     Indication: Child abuse
     Dosage: 50 MILLIGRAM DAILY; ADMINISTERED EVERY 6 HOURS AS REQUIRED
     Route: 048
  37. DIMENHYDRINATE [Suspect]
     Active Substance: DIMENHYDRINATE
     Indication: Constipation

REACTIONS (3)
  - Victim of child abuse [Unknown]
  - Drug dependence [Unknown]
  - Respiratory depression [Recovered/Resolved]
